FAERS Safety Report 5113780-7 (Version None)
Quarter: 2006Q3

REPORT INFORMATION
  Report Type: 
  Country: None (occurrence: None)
  Receive Date: 20060921
  Receipt Date: 20060912
  Transmission Date: 20061208
  Serious: Yes (Hospitalization, Other)
  Sender: FDA-Public Use
  Company Number: HQWYE104126OCT04

PATIENT
  Age: 64 Year
  Sex: Female

DRUGS (4)
  1. PREMPRO [Suspect]
  2. MEDROXYPROGESTERONE [Suspect]
  3. PREMARIN [Suspect]
  4. PROVERA [Suspect]

REACTIONS (2)
  - BREAST CANCER FEMALE [None]
  - BREAST CANCER IN SITU [None]
